FAERS Safety Report 8561165-3 (Version None)
Quarter: 2012Q3

REPORT INFORMATION
  Report Type: 
  Country: None (occurrence: None)
  Receive Date: 20120802
  Receipt Date: 20120723
  Transmission Date: 20120928
  Serious: Yes (Hospitalization)
  Sender: FDA-Public Use
  Company Number: US-ACTELION-A-NJ2012-60025

PATIENT
  Age: 71 Year
  Sex: Female

DRUGS (4)
  1. TRACLEER [Suspect]
     Indication: PULMONARY ARTERIAL HYPERTENSION
     Dosage: UNK
     Route: 048
  2. PLAVIX [Concomitant]
  3. NITROGLYCERIN [Concomitant]
  4. ASPIRIN [Concomitant]

REACTIONS (7)
  - CARDIAC FAILURE CONGESTIVE [None]
  - NASAL CONGESTION [None]
  - ARTHRALGIA [None]
  - BLOOD POTASSIUM DECREASED [None]
  - FLUID RETENTION [None]
  - ANAEMIA [None]
  - BLOOD GLUCOSE INCREASED [None]
